FAERS Safety Report 12716405 (Version 1)
Quarter: 2016Q3

REPORT INFORMATION
  Report Type: Spontaneous
  Country: NL (occurrence: NL)
  Receive Date: 20160906
  Receipt Date: 20160906
  Transmission Date: 20161109
  Serious: Yes (Hospitalization)
  Sender: FDA-Public Use
  Company Number: NL-TEVA-688642ACC

PATIENT
  Age: 24 Year
  Sex: Female
  Weight: 59 kg

DRUGS (7)
  1. TOPIRAMAAT TABLET OMHULD  25MG [Concomitant]
     Dosage: 1 TIME DAILY 2 TABLETS AND 1 TIME DAILY 3 TABLETS
     Route: 048
  2. EUTHYROX TABLET  25MCG [Concomitant]
     Dosage: 50 MICROGRAM DAILY; 1 TIME DAILY 2 TABLETS
     Route: 048
  3. CERAZETTE TABLET OMHULD 0,075MG [Concomitant]
     Dosage: 1 DOSAGE FORMS DAILY;
     Route: 048
  4. LAMOTRIGINE PCH DISPERS TABLET 100MG [Suspect]
     Active Substance: LAMOTRIGINE
     Indication: EPILEPSY
     Dosage: 300 MILLIGRAM DAILY; EXTRA INFO: 2 TIMES DAILY 150 MG
     Route: 048
     Dates: start: 20160401, end: 20160617
  5. INDOMETACINE CAPSULE 25MG [Concomitant]
     Active Substance: INDOMETHACIN
     Dosage: 100 MILLIGRAM DAILY; IF NECESSARY 1 TIME DAILY 25 MG TO 4 TIMES DAILY 25 MG
     Route: 048
  6. PANTOPRAZOL TABLET MSR 40MG [Concomitant]
     Active Substance: PANTOPRAZOLE SODIUM
     Dosage: 40 MILLIGRAM DAILY; 1 TIME DAILY 40 MG,GASTRO-RESISTANT TABLET
     Route: 048
  7. COLECALCIFEROL TABLET   800IE [Concomitant]
     Dosage: 800 IU (INTERNATIONAL UNIT) DAILY; 1 TIME DAILY 800IU
     Route: 048

REACTIONS (3)
  - Epilepsy [Recovered/Resolved]
  - Therapeutic response unexpected [Recovered/Resolved]
  - Drug level decreased [Recovered/Resolved]

NARRATIVE: CASE EVENT DATE: 20160509
